FAERS Safety Report 10053167 (Version 2)
Quarter: 2014Q2

REPORT INFORMATION
  Report Type: Spontaneous
  Country: JP (occurrence: JP)
  Receive Date: 20140402
  Receipt Date: 20140402
  Transmission Date: 20141212
  Serious: Yes (Other)
  Sender: FDA-Public Use
  Company Number: JP-EISAI INC-E7389-04675-SPO-JP

PATIENT
  Sex: Female

DRUGS (3)
  1. HALAVEN [Suspect]
     Indication: BREAST CANCER RECURRENT
     Dosage: 0.7 MG/M2
     Route: 041
     Dates: start: 2013
  2. PARIET [Concomitant]
     Route: 048
  3. ZOMETA [Concomitant]
     Route: 042

REACTIONS (1)
  - Intestinal haemorrhage [Not Recovered/Not Resolved]
